FAERS Safety Report 24395427 (Version 1)
Quarter: 2024Q4

REPORT INFORMATION
  Report Type: Spontaneous
  Country: DE (occurrence: DE)
  Receive Date: 20241004
  Receipt Date: 20241004
  Transmission Date: 20250115
  Serious: Yes (Hospitalization, Other)
  Sender: TEVA
  Company Number: DE-TEVA-VS-3248921

PATIENT
  Age: 84 Year
  Sex: Female

DRUGS (5)
  1. DIAZEPAM [Suspect]
     Active Substance: DIAZEPAM
     Indication: Product used for unknown indication
     Dosage: RATIOPHARM 2 MG TABLETTEN?DOSAGE: 1-0-1
     Route: 048
  2. OXAZEPAM [Suspect]
     Active Substance: OXAZEPAM
     Indication: Post-traumatic stress disorder
     Dosage: -RATIOPHARM?DOSAGE: 0.5-0-0.5?TEVA
     Route: 048
     Dates: start: 2000
  3. BISOPROLOL [Concomitant]
     Active Substance: BISOPROLOL\BISOPROLOL FUMARATE
     Indication: Product used for unknown indication
     Dosage: 2.5
     Route: 065
  4. MIRTAZAPINE [Concomitant]
     Active Substance: MIRTAZAPINE
     Indication: Depression
     Route: 065
  5. RISPERIDONE [Concomitant]
     Active Substance: RISPERIDONE
     Indication: Product used for unknown indication
     Dosage: 2X 0.25
     Route: 065

REACTIONS (6)
  - Liver injury [Unknown]
  - Hospitalisation [Unknown]
  - Balance disorder [Unknown]
  - Fatigue [Unknown]
  - Dizziness [Unknown]
  - Drug intolerance [Unknown]

NARRATIVE: CASE EVENT DATE: 20000101
